FAERS Safety Report 5192322-4 (Version None)
Quarter: 2006Q4

REPORT INFORMATION
  Report Type: 
  Country: None (occurrence: None)
  Receive Date: 20061227
  Receipt Date: 20060814
  Transmission Date: 20070319
  Serious: Yes (Hospitalization, Other)
  Sender: FDA-Public Use
  Company Number: US-PFIZER INC-2006099462

PATIENT
  Sex: Female
  Weight: 70.3 kg

DRUGS (6)
  1. ZYVOX [Suspect]
     Indication: BACTERIAL INFECTION
     Route: 065
  2. MEDROL [Suspect]
     Indication: INFLAMMATION
  3. PROZAC [Concomitant]
     Indication: DEPRESSION
     Route: 065
  4. RISPERDAL [Concomitant]
     Indication: MOOD SWINGS
     Route: 065
  5. UNKNOWN ANTI FUNGAL [Concomitant]
  6. LEVAQUIN [Concomitant]

REACTIONS (17)
  - ASTHENIA [None]
  - BEDRIDDEN [None]
  - BLISTER [None]
  - DRUG INEFFECTIVE [None]
  - FATIGUE [None]
  - FEELING ABNORMAL [None]
  - FINGER NAIL REMOVAL [None]
  - HAEMATOCRIT DECREASED [None]
  - HAEMOGLOBIN DECREASED [None]
  - INSOMNIA [None]
  - LOCALISED INFECTION [None]
  - MEAN CELL VOLUME INCREASED [None]
  - NAUSEA [None]
  - RASH [None]
  - RED BLOOD CELL COUNT DECREASED [None]
  - VOMITING [None]
  - WHITE BLOOD CELL COUNT INCREASED [None]
